FAERS Safety Report 5950918-3 (Version None)
Quarter: 2008Q4

REPORT INFORMATION
  Report Type: 
  Country: None (occurrence: None)
  Receive Date: 20081110
  Receipt Date: 20081027
  Transmission Date: 20090506
  Serious: Yes (Death, Hospitalization, Other)
  Sender: FDA-Public Use
  Company Number: A-NJ2008-20767

PATIENT
  Age: 30 Year
  Sex: Female
  Weight: 70.4 kg

DRUGS (6)
  1. TRACLEER [Suspect]
     Indication: PULMONARY ARTERIAL HYPERTENSION
     Dosage: ORAL
     Route: 048
     Dates: start: 20080111, end: 20080501
  2. REVATIO [Suspect]
     Dosage: 20 MG, TID
     Dates: end: 20080701
  3. REMODULIN (TREPROSTINIL) [Concomitant]
  4. LASIX [Concomitant]
  5. COUMADIN [Concomitant]
  6. MISOPROSTOL [Concomitant]

REACTIONS (14)
  - ABORTION INDUCED [None]
  - COLITIS ISCHAEMIC [None]
  - DISEASE PROGRESSION [None]
  - DRUG EXPOSURE DURING PREGNANCY [None]
  - GENERALISED OEDEMA [None]
  - HEPATIC FAILURE [None]
  - LACTIC ACIDOSIS [None]
  - PERICARDIAL EFFUSION [None]
  - PLEURAL EFFUSION [None]
  - PREGNANCY [None]
  - PULMONARY ARTERIAL HYPERTENSION [None]
  - RIGHT VENTRICULAR FAILURE [None]
  - SEPSIS [None]
  - URINE OUTPUT DECREASED [None]
